FAERS Safety Report 6979424-4 (Version None)
Quarter: 2010Q3

REPORT INFORMATION
  Report Type: 
  Country: None (occurrence: None)
  Receive Date: 20100913
  Receipt Date: 20100903
  Transmission Date: 20110219
  Serious: Yes (Disabling)
  Sender: FDA-Public Use
  Company Number: JP-ELI_LILLY_AND_COMPANY-JP201009001531

PATIENT
  Age: 75 Year
  Sex: Male

DRUGS (2)
  1. GEMZAR [Suspect]
     Indication: PANCREATIC CARCINOMA
     Dosage: 1500 MG, UNK
     Route: 042
     Dates: start: 20100801
  2. TS 1 [Concomitant]
     Indication: PANCREATIC CARCINOMA
     Dosage: 80 MG, UNK
     Route: 048
     Dates: start: 20100801

REACTIONS (1)
  - PERNICIOUS ANAEMIA [None]
